FAERS Safety Report 4358227-3 (Version None)
Quarter: 2004Q2

REPORT INFORMATION
  Report Type: 
  Country: None (occurrence: None)
  Receive Date: 20040513
  Receipt Date: 20040513
  Transmission Date: 20050107
  Serious: Yes (Disabling, Other)
  Sender: FDA-Public Use
  Company Number: None

PATIENT
  Age: 47 Year
  Sex: Male
  Weight: 58.9676 kg

DRUGS (2)
  1. EFFEXOR [Suspect]
     Indication: ANXIETY
     Dosage: 150 / MG DAY ORAL
     Route: 048
     Dates: start: 20031010, end: 20040512
  2. EFFEXOR [Suspect]
     Indication: DEPRESSION
     Dosage: 150 / MG DAY ORAL
     Route: 048
     Dates: start: 20031010, end: 20040512

REACTIONS (4)
  - DRUG WITHDRAWAL SYNDROME [None]
  - FAMILY STRESS [None]
  - IMPAIRED WORK ABILITY [None]
  - THINKING ABNORMAL [None]
